FAERS Safety Report 17688081 (Version 1)
Quarter: 2020Q2

REPORT INFORMATION
  Report Type: Spontaneous
  Country: US (occurrence: US)
  Receive Date: 20200417
  Receipt Date: 20200417
  Transmission Date: 20200714
  Serious: Yes (Hospitalization)
  Sender: FDA-Public Use
  Company Number: None

PATIENT
  Age: 70 Year
  Sex: Male
  Weight: 169 kg

DRUGS (1)
  1. WARFARIN WARFARIN NA EXELAN 5MG TAB) [Suspect]
     Active Substance: WARFARIN SODIUM
     Indication: ATRIAL FIBRILLATION
     Route: 048
     Dates: start: 20131016

REACTIONS (5)
  - Transient ischaemic attack [None]
  - Facial paralysis [None]
  - Dysarthria [None]
  - Overdose [None]
  - Cerebrovascular accident [None]

NARRATIVE: CASE EVENT DATE: 20191227
